FAERS Safety Report 25421246 (Version 1)
Quarter: 2025Q2

REPORT INFORMATION
  Report Type: Spontaneous
  Country: BR (occurrence: BR)
  Receive Date: 20250611
  Receipt Date: 20250611
  Transmission Date: 20250716
  Serious: Yes (Other)
  Sender: JOHNSON AND JOHNSON
  Company Number: BR-JNJFOC-20241117859

PATIENT
  Age: 52 Year
  Sex: Male
  Weight: 93 kg

DRUGS (2)
  1. STELARA [Suspect]
     Active Substance: USTEKINUMAB
     Indication: Product used for unknown indication
     Route: 058
     Dates: start: 2023, end: 2024
  2. STELARA [Suspect]
     Active Substance: USTEKINUMAB
     Route: 058
     Dates: start: 20230901, end: 20250530

REACTIONS (1)
  - Fibrous histiocytoma [Recovered/Resolved]

NARRATIVE: CASE EVENT DATE: 20230119
